FAERS Safety Report 4584462-5 (Version None)
Quarter: 2005Q1

REPORT INFORMATION
  Report Type: 
  Country: None (occurrence: None)
  Receive Date: 20050125
  Receipt Date: 20041108
  Transmission Date: 20050727
  Serious: No
  Sender: FDA-Public Use
  Company Number: USA041183499

PATIENT
  Age: 70 Year
  Sex: Female

DRUGS (1)
  1. FORTEO [Suspect]
     Indication: OSTEOPOROSIS
     Dates: start: 20040101

REACTIONS (5)
  - ANAEMIA [None]
  - FATIGUE [None]
  - GLOSSODYNIA [None]
  - HYPOAESTHESIA ORAL [None]
  - SWELLING FACE [None]
